FAERS Safety Report 7120952-9 (Version None)
Quarter: 2010Q4

REPORT INFORMATION
  Report Type: 
  Country: None (occurrence: None)
  Receive Date: 20101124
  Receipt Date: 20101119
  Transmission Date: 20110411
  Serious: Yes (Hospitalization)
  Sender: FDA-Public Use
  Company Number: US-US-EMD SERONO, INC.-7028668

PATIENT
  Sex: Female
  Weight: 67 kg

DRUGS (5)
  1. REBIF [Suspect]
     Indication: MULTIPLE SCLEROSIS
     Route: 058
     Dates: start: 20101022
  2. PROZAC [Concomitant]
     Indication: DEPRESSION
  3. REMERON [Concomitant]
     Indication: DEPRESSION
  4. LORAZEPAM [Concomitant]
     Indication: ANXIETY
  5. A LOT OF UNSPECIFIED PRESCRIPTIONS [Concomitant]

REACTIONS (3)
  - COLITIS ISCHAEMIC [None]
  - PAIN [None]
  - VON WILLEBRAND'S DISEASE [None]
